FAERS Safety Report 23295899 (Version 1)
Quarter: 2023Q4

REPORT INFORMATION
  Report Type: Spontaneous
  Country: BR (occurrence: BR)
  Receive Date: 20231214
  Receipt Date: 20231214
  Transmission Date: 20240109
  Serious: Yes (Other)
  Sender: FDA-Public Use
  Company Number: BR-BAXTER-2023BAX037898

PATIENT
  Sex: Female
  Weight: 55 kg

DRUGS (4)
  1. GENUXAL [Suspect]
     Active Substance: CYCLOPHOSPHAMIDE
     Dosage: 954 MG (600 MG/M2), D1, EVERY 21 DAYS, DURING 30 MIN, AS A PART OF 4TH CYCLE OF AC REGIMEN
     Route: 042
  2. GENUXAL [Suspect]
     Active Substance: CYCLOPHOSPHAMIDE
     Dosage: UNK, AS A PART OF FIRST CYCLE OF AC REGIMEN
     Route: 065
     Dates: start: 20231109
  3. DOXORUBICIN [Suspect]
     Active Substance: DOXORUBICIN
     Dosage: 60 MG/M2, EVERY 21 DAYS, D1, AS A PART OF 4TH CYCLE OF AC REGIMEN
     Route: 042
  4. DOXORUBICIN [Suspect]
     Active Substance: DOXORUBICIN
     Dosage: UNK, AS A PART OF FIRST CYCLE OF AC REGIMEN
     Route: 065
     Dates: start: 20231109

REACTIONS (3)
  - Laryngeal pain [Recovered/Resolved]
  - Eye irritation [Recovered/Resolved]
  - Nasal discomfort [Recovered/Resolved]
